FAERS Safety Report 9728502 (Version 1)
Quarter: 2013Q4

REPORT INFORMATION
  Report Type: Spontaneous
  Country: US (occurrence: None)
  Receive Date: 20131203
  Receipt Date: 20131203
  Transmission Date: 20140711
  Serious: Yes (Other)
  Sender: FDA-Public Use
  Company Number: None

PATIENT
  Age: 60 Year
  Sex: Female

DRUGS (6)
  1. XARELTO 20 MG [Suspect]
     Indication: ATRIAL FIBRILLATION
  2. TRIAMTERENE/HCTZ [Concomitant]
  3. VITAMIN C [Concomitant]
  4. VITAMIN D [Concomitant]
  5. SUPER B 100 [Concomitant]
  6. BYSTOLIC 5 MG [Concomitant]

REACTIONS (7)
  - Pain in extremity [None]
  - Abasia [None]
  - Weight bearing difficulty [None]
  - Bone pain [None]
  - Dysstasia [None]
  - Arthralgia [None]
  - Spinal pain [None]
